FAERS Safety Report 4369028-4 (Version None)
Quarter: 2004Q2

REPORT INFORMATION
  Report Type: 
  Country: None (occurrence: None)
  Receive Date: 20040527
  Receipt Date: 20040517
  Transmission Date: 20050107
  Serious: Yes (Other)
  Sender: FDA-Public Use
  Company Number: US-2004-025528

PATIENT
  Age: 16 Year
  Sex: Female

DRUGS (1)
  1. ULTRAVIST 300 [Suspect]
     Indication: COMPUTERISED TOMOGRAM ABDOMEN
     Dosage: 69 ML, 1 DOSE, INTRAVENOUS
     Route: 042
     Dates: start: 20040517, end: 20040517

REACTIONS (4)
  - ARRHYTHMIA [None]
  - PAIN [None]
  - RESPIRATORY DISTRESS [None]
  - WHEEZING [None]
